FAERS Safety Report 8976765 (Version 2)
Quarter: 2012Q4

REPORT INFORMATION
  Report Type: 
  Country: US (occurrence: US)
  Receive Date: 20121220
  Receipt Date: 20121227
  Transmission Date: 20130627
  Serious: Yes (Hospitalization, Other)
  Sender: FDA-Public Use
  Company Number: US-VERTEX PHARMACEUTICALS INC.-2012-026451

PATIENT
  Age: 37 None
  Sex: Female
  Weight: 59 kg

DRUGS (8)
  1. INCIVEK [Suspect]
     Indication: HEPATITIS C
     Dosage: 750 mg, tid
     Route: 048
     Dates: start: 20120722, end: 20121218
  2. RIBAVIRIN [Suspect]
     Indication: HEPATITIS C
     Dosage: 400 mg, bid
     Route: 048
     Dates: start: 20120722
  3. PEGINTRON                          /01543001/ [Suspect]
     Indication: HEPATITIS C
     Dosage: 0.7 ml, qw
     Route: 058
     Dates: start: 20120722
  4. DILANTIN                           /00017401/ [Concomitant]
     Indication: CONVULSION
     Dosage: 100 mg am, noon and 200 mg night
  5. DEPAKOTE SPRINKLE [Concomitant]
     Indication: CONVULSION
     Dosage: 500 mg, tid
  6. ATIVAN [Concomitant]
     Indication: CONVULSION
     Dosage: 2 DF, prn
  7. REMERON [Concomitant]
     Dosage: 1- 2 df at night
     Dates: start: 201209
  8. KLONOPIN [Concomitant]

REACTIONS (15)
  - Transient ischaemic attack [Not Recovered/Not Resolved]
  - Angina pectoris [Not Recovered/Not Resolved]
  - Blood pressure abnormal [Unknown]
  - Deafness [Not Recovered/Not Resolved]
  - Loss of consciousness [Unknown]
  - Dyspnoea [Not Recovered/Not Resolved]
  - Medication error [Unknown]
  - Depression [Recovered/Resolved]
  - Nasopharyngitis [Unknown]
  - Crying [Unknown]
  - Bone pain [Not Recovered/Not Resolved]
  - Myalgia [Not Recovered/Not Resolved]
  - Weight decreased [Not Recovered/Not Resolved]
  - Pain in extremity [Not Recovered/Not Resolved]
  - Drug ineffective [Unknown]
